FAERS Safety Report 7382811-6 (Version None)
Quarter: 2011Q1

REPORT INFORMATION
  Report Type: 
  Country: None (occurrence: None)
  Receive Date: 20110330
  Receipt Date: 20110321
  Transmission Date: 20110831
  Serious: No
  Sender: FDA-Public Use
  Company Number: US-BIOGENIDEC-2011BI010616

PATIENT
  Sex: Female

DRUGS (3)
  1. AVONEX [Suspect]
     Indication: MULTIPLE SCLEROSIS
     Route: 030
     Dates: start: 20091026
  2. AVONEX [Suspect]
     Route: 030
     Dates: start: 20090305, end: 20090817
  3. AVONEX [Suspect]
     Route: 030
     Dates: start: 20030821, end: 20080201

REACTIONS (3)
  - WHEEZING [None]
  - MOBILITY DECREASED [None]
  - HYPERSOMNIA [None]
